FAERS Safety Report 4808448-8 (Version None)
Quarter: 2005Q4

REPORT INFORMATION
  Report Type: 
  Country: None (occurrence: None)
  Receive Date: 20051021
  Receipt Date: 20050610
  Transmission Date: 20060501
  Serious: No
  Sender: FDA-Public Use
  Company Number: FR_050606629

PATIENT
  Age: 29 Year
  Sex: Male
  Weight: 68 kg

DRUGS (5)
  1. ZYPREXA [Suspect]
     Indication: SCHIZOPHRENIA, CATATONIC TYPE
     Dosage: 15 MG DAY
     Dates: start: 20040101
  2. DEPAKOTE [Concomitant]
  3. HEPT-A-MYL (HEPTAMINOL HYDROCHLORIDE) [Concomitant]
  4. ZOLPIDEM TARTRATE [Concomitant]
  5. LORAZEPAM [Concomitant]

REACTIONS (2)
  - LEUKOPENIA [None]
  - NEUTROPENIA [None]
